FAERS Safety Report 15583192 (Version 3)
Quarter: 2019Q1

REPORT INFORMATION
  Report Type: Report from Study
  Country: IT (occurrence: IT)
  Receive Date: 20181105
  Receipt Date: 20190131
  Transmission Date: 20190417
  Serious: Yes (Life-Threatening, Hospitalization)
  Sender: FDA-Public Use
  Company Number: IT-ROCHE-2207943

PATIENT
  Age: 62 Year
  Sex: Female

DRUGS (3)
  1. ROCEFIN [Concomitant]
     Active Substance: CEFTRIAXONE SODIUM
     Indication: FISTULA OF SMALL INTESTINE
     Route: 030
     Dates: start: 20180509, end: 20180521
  2. BEVACIZUMAB. [Suspect]
     Active Substance: BEVACIZUMAB
     Indication: COLORECTAL CANCER
     Dosage: (DILUTED IN 0.9% SODIUM CHLORIDE SOLUTION) ON DAY 1 OF EACH 21 DAYS CYCLE.?21/MAY/2018 LAST DOSE PRI
     Route: 042
     Dates: start: 20180430
  3. ATEZOLIZUMAB. [Suspect]
     Active Substance: ATEZOLIZUMAB
     Indication: COLORECTAL CANCER
     Dosage: IN 250 ML 0.9% NACL IV INFUSION BAG, ON DAY 1 OF EACH CYCLE OF 21 DAYS.?21/MAY/2018 LAST DOSE PRIOR
     Route: 042
     Dates: start: 20180430

REACTIONS (2)
  - Fistula of small intestine [Not Recovered/Not Resolved]
  - Sepsis [Recovered/Resolved]

NARRATIVE: CASE EVENT DATE: 20180530
